FAERS Safety Report 9289289 (Version 1)
Quarter: 2013Q2

REPORT INFORMATION
  Report Type: Report from Study
  Country: US (occurrence: US)
  Receive Date: 20130514
  Receipt Date: 20130514
  Transmission Date: 20140414
  Serious: Yes (Other)
  Sender: FDA-Public Use
  Company Number: US-ABBOTT-13P-163-1088279-00

PATIENT
  Sex: Male
  Weight: 95.34 kg

DRUGS (4)
  1. HUMIRA [Suspect]
     Indication: PSORIASIS
     Dates: start: 2009, end: 201211
  2. BYSTOLIC [Concomitant]
     Indication: HYPERTENSION
  3. FLOMAX [Concomitant]
     Indication: PROSTATOMEGALY
  4. PRILOSEC [Concomitant]
     Indication: DYSPEPSIA

REACTIONS (6)
  - Tonsillitis [Recovered/Resolved]
  - Pharyngeal oedema [Recovered/Resolved]
  - Pneumonia [Recovered/Resolved]
  - Chest discomfort [Recovered/Resolved]
  - Dyspnoea [Recovered/Resolved]
  - Asthenia [Recovered/Resolved]
